FAERS Safety Report 24975169 (Version 1)
Quarter: 2025Q1

REPORT INFORMATION
  Report Type: Spontaneous
  Country: CR (occurrence: CR)
  Receive Date: 20250217
  Receipt Date: 20250217
  Transmission Date: 20250409
  Serious: Yes (Other)
  Sender: SANOFI AVENTIS
  Company Number: CR-SA-2025SA044284

PATIENT
  Sex: Female

DRUGS (1)
  1. IRBESARTAN [Suspect]
     Active Substance: IRBESARTAN
     Route: 065

REACTIONS (1)
  - Type 1 diabetes mellitus [Not Recovered/Not Resolved]

NARRATIVE: CASE EVENT DATE: 20240501
